FAERS Safety Report 10051572 (Version 1)
Quarter: 2014Q2

REPORT INFORMATION
  Report Type: Spontaneous
  Country: US (occurrence: US)
  Receive Date: 20140401
  Receipt Date: 20140401
  Transmission Date: 20141212
  Serious: No
  Sender: FDA-Public Use
  Company Number: US-B.I. PHARMACEUTICALS,INC./RIDGEFIELD-2014-BI-12624PF

PATIENT
  Sex: Male
  Weight: 110 kg

DRUGS (25)
  1. SPIRIVA [Suspect]
     Indication: PRODUCT USED FOR UNKNOWN INDICATION
     Dosage: 18 MCG
     Route: 055
  2. TRAMADOL HCL [Concomitant]
     Dosage: 150 MG
     Route: 048
  3. PROMETHAZINE HCL [Concomitant]
     Dosage: DAILY DOSE: 1/2 TO 1 PO
     Route: 048
  4. NITROSTAT [Concomitant]
     Indication: CHEST PAIN
     Route: 060
  5. METOPROLOL TARTRATE [Concomitant]
     Dosage: 50 MG
     Route: 048
  6. ADULT ASPIRIN EC [Concomitant]
     Dosage: 81 MG
     Route: 048
  7. GLIMEPIRIDE [Concomitant]
     Dosage: 2 MG
     Route: 048
  8. HYDROCHLOROTHIAZIDE [Concomitant]
     Route: 048
  9. REQUIP XL [Concomitant]
     Dosage: DOSE PER APPLICATION: 2 MG XR24H-TAD
     Route: 048
  10. ZOCOR [Concomitant]
     Dosage: 40 MG
     Route: 048
  11. LISINOPRIL [Concomitant]
     Route: 048
  12. JANUVIA [Concomitant]
     Dosage: 100 MG
     Route: 048
  13. POTASSIUM GLUCONATE [Concomitant]
     Dosage: 595 MG
     Route: 048
  14. PROVENTIL HFA [Concomitant]
     Dosage: 8 PUF
     Route: 065
  15. LIDODERM [Concomitant]
     Indication: PAIN
     Dosage: FORMULATION: PATCH; DOSE PER APPLICATION: 5 %
     Route: 061
  16. NEXIUM CPDR [Concomitant]
     Dosage: 80 MG
     Route: 048
  17. LYRICA [Concomitant]
     Indication: DIABETIC NEUROPATHY
     Dosage: 800 MG
     Route: 048
  18. LYRICA [Concomitant]
     Route: 048
  19. AVODART [Concomitant]
     Dosage: 0.5 MG
     Route: 048
  20. NASONEX SUSP [Concomitant]
     Dosage: FORMULATION: SPRAY, ROUTE: NASAL
     Route: 050
  21. METFORMIN HCL [Concomitant]
     Route: 048
  22. SYMBICORT [Concomitant]
     Dosage: 2 PUF
     Route: 048
  23. PAROXETINE HCL [Concomitant]
     Dosage: 2 ANZ
     Route: 048
  24. AMBIEN [Concomitant]
     Dosage: 10 MG
     Route: 048
  25. ATIVAN [Concomitant]
     Dosage: 3 MG
     Route: 048

REACTIONS (3)
  - Pain in extremity [Unknown]
  - Gait disturbance [Unknown]
  - Chronic obstructive pulmonary disease [Unknown]
